FAERS Safety Report 8415111-3 (Version None)
Quarter: 2012Q2

REPORT INFORMATION
  Report Type: 
  Country: None (occurrence: None)
  Receive Date: 20120606
  Receipt Date: 20120530
  Transmission Date: 20120825
  Serious: Yes (Other)
  Sender: FDA-Public Use
  Company Number: US-BAYER-2011-072839

PATIENT
  Age: 38 Year
  Sex: Female
  Weight: 104 kg

DRUGS (7)
  1. YAZ [Suspect]
     Indication: CONTRACEPTION
     Dosage: UNK
     Dates: start: 20080101, end: 20080301
  2. ZEGERID [Concomitant]
     Dosage: UNK
     Dates: start: 20060101, end: 20110101
  3. YAZ [Suspect]
     Indication: PREMENSTRUAL SYNDROME
  4. YAZ [Suspect]
  5. METFORMIN HCL [Concomitant]
     Dosage: UNK
     Dates: start: 20060101
  6. SPIRONOLACTONE [Concomitant]
     Dosage: UNK
     Dates: start: 20060101
  7. CELEXA [Concomitant]
     Dosage: UNK
     Dates: start: 19900101, end: 20080101

REACTIONS (8)
  - OEDEMA PERIPHERAL [None]
  - PAIN IN EXTREMITY [None]
  - ANHEDONIA [None]
  - PSYCHOLOGICAL TRAUMA [None]
  - FEAR [None]
  - DEPRESSION [None]
  - DEEP VEIN THROMBOSIS [None]
  - ANXIETY [None]
